FAERS Safety Report 5143146-5 (Version None)
Quarter: 2006Q4

REPORT INFORMATION
  Report Type: 
  Country: None (occurrence: None)
  Receive Date: 20061103
  Receipt Date: 20061026
  Transmission Date: 20070319
  Serious: Yes (Hospitalization)
  Sender: FDA-Public Use
  Company Number: GB-AVENTIS-200615453EU

PATIENT
  Age: 65 Year

DRUGS (5)
  1. CLEXANE [Suspect]
     Indication: DRUG USE FOR UNKNOWN INDICATION
     Route: 058
  2. ASPIRIN [Suspect]
     Indication: ANTIPLATELET THERAPY
     Route: 048
  3. CLOPIDOGREL [Suspect]
     Indication: DRUG USE FOR UNKNOWN INDICATION
     Route: 048
  4. IBUPROFEN [Suspect]
     Indication: DRUG USE FOR UNKNOWN INDICATION
  5. PREDNISOLONE [Suspect]
     Indication: DRUG USE FOR UNKNOWN INDICATION
     Route: 048

REACTIONS (2)
  - GASTROINTESTINAL HAEMORRHAGE [None]
  - HELICOBACTER INFECTION [None]
